FAERS Safety Report 19642667 (Version 2)
Quarter: 2021Q3

REPORT INFORMATION
  Report Type: Spontaneous
  Country: US (occurrence: US)
  Receive Date: 20210730
  Receipt Date: 20210810
  Transmission Date: 20211014
  Serious: No
  Sender: FDA-Public Use
  Company Number: US-PFIZER INC-2021396499

PATIENT
  Age: 80 Year
  Sex: Female
  Weight: 70.76 kg

DRUGS (4)
  1. MEDROL [Suspect]
     Active Substance: METHYLPREDNISOLONE
     Indication: SWELLING
     Dosage: 4 MG (FREQUENCY WAS DIFFERENT BASED ON THE DAY)
     Route: 048
     Dates: start: 20210220, end: 20210226
  2. MEDROL [Suspect]
     Active Substance: METHYLPREDNISOLONE
     Indication: ARTHRALGIA
  3. MEDROL [Suspect]
     Active Substance: METHYLPREDNISOLONE
     Indication: BACK PAIN
  4. MEDROL [Suspect]
     Active Substance: METHYLPREDNISOLONE
     Indication: NECK PAIN

REACTIONS (2)
  - Off label use [Unknown]
  - Drug ineffective for unapproved indication [Unknown]

NARRATIVE: CASE EVENT DATE: 2021
